FAERS Safety Report 8016830-3 (Version None)
Quarter: 2012Q1

REPORT INFORMATION
  Report Type: 
  Country: None (occurrence: None)
  Receive Date: 20120102
  Receipt Date: 20111223
  Transmission Date: 20120608
  Serious: Yes (Hospitalization, Other)
  Sender: FDA-Public Use
  Company Number: US-TYCO HEALTHCARE/MALLINCKRODT-T200901383

PATIENT
  Sex: Male
  Weight: 73.9 kg

DRUGS (4)
  1. OPTIRAY 160 [Suspect]
     Indication: X-RAY
     Dosage: 5-10 ML
     Route: 014
     Dates: start: 20090429, end: 20090429
  2. LIDOCAINE [Suspect]
     Indication: X-RAY
     Dosage: 5 ML, SINGLE
     Route: 014
     Dates: start: 20090429, end: 20090429
  3. SODIUM CHLORIDE [Suspect]
     Indication: ARTHROGRAM
     Dosage: 10 ML, SINGLE
     Route: 014
     Dates: start: 20090429, end: 20090429
  4. MAGNEVIST [Suspect]
     Indication: ARTHROGRAM
     Dosage: 1 ML, SINGLE
     Route: 014
     Dates: start: 20090429, end: 20090429

REACTIONS (10)
  - PAIN IN EXTREMITY [None]
  - FATIGUE [None]
  - OFF LABEL USE [None]
  - NAUSEA [None]
  - MYALGIA [None]
  - SEPTIC ARTHRITIS STAPHYLOCOCCAL [None]
  - MOTOR DYSFUNCTION [None]
  - WRONG TECHNIQUE IN DRUG USAGE PROCESS [None]
  - INCORRECT ROUTE OF DRUG ADMINISTRATION [None]
  - PAIN [None]
